FAERS Safety Report 12319919 (Version 5)
Quarter: 2018Q1

REPORT INFORMATION
  Report Type: Report from Study
  Country: None (occurrence: US)
  Receive Date: 20160429
  Receipt Date: 20180219
  Transmission Date: 20180508
  Serious: Yes (Hospitalization, Other)
  Sender: FDA-Public Use
  Company Number: US-ABBVIE-16K-163-1611117-00

PATIENT
  Sex: Male
  Weight: 89.44 kg

DRUGS (2)
  1. HUMIRA [Suspect]
     Active Substance: ADALIMUMAB
     Indication: CROHN^S DISEASE
     Route: 058
     Dates: start: 201502, end: 2015
  2. HUMIRA [Suspect]
     Active Substance: ADALIMUMAB
     Route: 058
     Dates: start: 20150514

REACTIONS (5)
  - Feeding disorder [Recovered/Resolved]
  - Umbilical hernia [Recovering/Resolving]
  - Blood potassium decreased [Not Recovered/Not Resolved]
  - Swelling [Unknown]
  - Hernia [Not Recovered/Not Resolved]

NARRATIVE: CASE EVENT DATE: 2016
